FAERS Safety Report 8272329-0 (Version None)
Quarter: 2012Q2

REPORT INFORMATION
  Report Type: 
  Country: None (occurrence: None)
  Receive Date: 20120410
  Receipt Date: 20120404
  Transmission Date: 20120825
  Serious: Yes (Hospitalization)
  Sender: FDA-Public Use
  Company Number: US-B.I. PHARMACEUTICALS,INC./RIDGEFIELD-2012-BP-06353BP

PATIENT
  Sex: Male

DRUGS (9)
  1. LIPITOR [Concomitant]
     Dosage: 20 MG
     Route: 048
  2. COSAMIN DS [Concomitant]
     Route: 048
  3. NAPROXEN (ALEVE) [Concomitant]
     Indication: PAIN
     Dosage: 440 MG
     Route: 048
  4. CYMBALTA [Concomitant]
     Dosage: 60 MG
     Route: 048
  5. VITAMIN D [Concomitant]
     Route: 048
  6. PRADAXA [Suspect]
     Indication: ATRIAL FIBRILLATION
     Dosage: 150 MG
     Route: 048
  7. ARICEPT [Concomitant]
     Indication: AMNESIA
     Dosage: 2.5 MG
     Route: 048
  8. LANOXIN [Concomitant]
     Dosage: 250 MCG
     Route: 048
  9. PRADAXA [Suspect]
     Dosage: 75 MG
     Route: 048

REACTIONS (1)
  - TRANSIENT ISCHAEMIC ATTACK [None]
